FAERS Safety Report 6018869-6 (Version None)
Quarter: 2008Q4

REPORT INFORMATION
  Report Type: 
  Country: None (occurrence: None)
  Receive Date: 20081224
  Receipt Date: 20081211
  Transmission Date: 20090506
  Serious: Yes (Other)
  Sender: FDA-Public Use
  Company Number: CH-SANOFI-SYNTHELABO-A01200816128

PATIENT
  Sex: Female
  Weight: 3.28 kg

DRUGS (10)
  1. CALCIMAGON-D3 [Concomitant]
     Route: 064
     Dates: end: 20000701
  2. CALCIMAGON-D3 [Concomitant]
     Route: 064
     Dates: end: 20000701
  3. MAGNESIOCARD [Concomitant]
     Route: 064
  4. MAGNESIOCARD [Concomitant]
     Route: 064
  5. PREDNISONE [Suspect]
     Route: 064
  6. PREDNISONE [Suspect]
     Route: 064
  7. CELLCEPT [Suspect]
     Indication: SYSTEMIC LUPUS ERYTHEMATOSUS
     Route: 064
     Dates: start: 19990101, end: 20000701
  8. CELLCEPT [Suspect]
     Route: 064
     Dates: start: 19990101, end: 20000701
  9. PLAQUENIL [Suspect]
     Route: 064
     Dates: end: 20000701
  10. PLAQUENIL [Suspect]
     Route: 064
     Dates: end: 20000701

REACTIONS (3)
  - BRADYCARDIA FOETAL [None]
  - CAESAREAN SECTION [None]
  - DRUG EXPOSURE DURING PREGNANCY [None]
